FAERS Safety Report 6322590-4 (Version None)
Quarter: 2009Q3

REPORT INFORMATION
  Report Type: 
  Country: None (occurrence: None)
  Receive Date: 20090824
  Receipt Date: 20090302
  Transmission Date: 20100115
  Serious: No
  Sender: FDA-Public Use
  Company Number: US-ABBOTT-09P-163-0560180-00

PATIENT
  Sex: Female

DRUGS (7)
  1. NIASPAN [Suspect]
     Indication: HIGH DENSITY LIPOPROTEIN DECREASED
     Dosage: EVERY NIGHT
     Dates: start: 20090224
  2. ASPIRIN [Concomitant]
     Indication: DRUG USE FOR UNKNOWN INDICATION
  3. METFORMIN HCL [Concomitant]
     Indication: DRUG USE FOR UNKNOWN INDICATION
  4. BYETTA [Concomitant]
     Indication: DRUG USE FOR UNKNOWN INDICATION
     Route: 058
  5. BYETTA [Concomitant]
     Route: 058
  6. LISINOPRIL [Concomitant]
     Indication: PROPHYLAXIS
  7. LISINOPRIL [Concomitant]
     Indication: RENAL DISORDER

REACTIONS (1)
  - BLOOD GLUCOSE INCREASED [None]
